FAERS Safety Report 7866004-1 (Version None)
Quarter: 2011Q4

REPORT INFORMATION
  Report Type: 
  Country: None (occurrence: None)
  Receive Date: 20111028
  Receipt Date: 20110406
  Transmission Date: 20120403
  Serious: No
  Sender: FDA-Public Use
  Company Number: US-GLAXOSMITHKLINE-A0921666A

PATIENT
  Age: 66 Year
  Sex: Male

DRUGS (5)
  1. IBUPROFEN [Concomitant]
  2. ASPIRIN [Concomitant]
  3. ADVAIR DISKUS 100/50 [Suspect]
     Indication: CHRONIC OBSTRUCTIVE PULMONARY DISEASE
     Dosage: 1PUFF TWICE PER DAY
     Route: 055
     Dates: start: 20100101
  4. DIOVAN [Concomitant]
  5. ZOLOFT [Concomitant]

REACTIONS (4)
  - MYALGIA [None]
  - PAIN IN EXTREMITY [None]
  - GAIT DISTURBANCE [None]
  - MUSCULOSKELETAL PAIN [None]
